FAERS Safety Report 5132827-5 (Version None)
Quarter: 2006Q4

REPORT INFORMATION
  Report Type: 
  Country: None (occurrence: None)
  Receive Date: 20061023
  Receipt Date: 20061012
  Transmission Date: 20070319
  Serious: Yes (Hospitalization, Disabling)
  Sender: FDA-Public Use
  Company Number: CG-MERCK-0610USA09968

PATIENT
  Age: 41 Year
  Sex: Female

DRUGS (1)
  1. STROMECTOL [Suspect]
     Route: 048
     Dates: start: 20060128, end: 20060128

REACTIONS (6)
  - ASTHENIA [None]
  - COMA [None]
  - DIARRHOEA [None]
  - DYSKINESIA [None]
  - URINARY INCONTINENCE [None]
  - VOMITING [None]
